FAERS Safety Report 14423645 (Version 1)
Quarter: 2018Q1

REPORT INFORMATION
  Report Type: Spontaneous
  Country: US (occurrence: US)
  Receive Date: 20180123
  Receipt Date: 20180123
  Transmission Date: 20180509
  Serious: No
  Sender: FDA-Public Use
  Company Number: US-TEVA-2018-US-848558

PATIENT
  Age: 42 Year
  Sex: Female
  Weight: 90.7 kg

DRUGS (2)
  1. CETIRIZINE W/PSEUDOEPHEDRINE ER 176 [Suspect]
     Active Substance: CETIRIZINE HYDROCHLORIDE\PSEUDOEPHEDRINE HYDROCHLORIDE
     Indication: PERENNIAL ALLERGY
     Dosage: TWICE A DAY
     Route: 048
     Dates: start: 20180106, end: 20180106
  2. CETIRIZINE W/PSEUDOEPHEDRINE ER 176 [Suspect]
     Active Substance: CETIRIZINE HYDROCHLORIDE\PSEUDOEPHEDRINE HYDROCHLORIDE
     Dosage: SINGLE
     Route: 048
     Dates: start: 20180107, end: 20180107

REACTIONS (2)
  - Headache [Recovered/Resolved]
  - Condition aggravated [Recovered/Resolved]

NARRATIVE: CASE EVENT DATE: 20180106
